FAERS Safety Report 4887068-3 (Version None)
Quarter: 2006Q1

REPORT INFORMATION
  Report Type: 
  Country: None (occurrence: None)
  Receive Date: 20060120
  Receipt Date: 20050920
  Transmission Date: 20060701
  Serious: Yes (Death, Hospitalization)
  Sender: FDA-Public Use
  Company Number: US-MERCK-0509USA03221

PATIENT
  Age: 84 Year
  Sex: Female
  Weight: 67 kg

DRUGS (3)
  1. VIOXX [Suspect]
     Indication: ARTHRITIS
     Route: 048
     Dates: start: 20000504, end: 20030903
  2. AMARYL [Concomitant]
     Route: 065
  3. DEXTROSE [Concomitant]
     Route: 065

REACTIONS (6)
  - ACUTE MYOCARDIAL INFARCTION [None]
  - BACK PAIN [None]
  - BLADDER NEOPLASM [None]
  - CARDIOGENIC SHOCK [None]
  - CARDIOVASCULAR DISORDER [None]
  - DEATH [None]
